FAERS Safety Report 10030665 (Version 2)
Quarter: 2014Q1

REPORT INFORMATION
  Report Type: Spontaneous
  Country: US (occurrence: US)
  Receive Date: 20140323
  Receipt Date: 20140323
  Transmission Date: 20141002
  Serious: No
  Sender: FDA-Public Use
  Company Number: US-ALLERGAN-1320068US

PATIENT
  Age: 46 Year
  Sex: Female

DRUGS (9)
  1. LATISSE 0.03% [Suspect]
     Indication: GROWTH OF EYELASHES
     Dosage: 2 GTT, QHS
     Route: 061
     Dates: start: 201311, end: 20131217
  2. KEPPRA [Concomitant]
     Indication: CONVULSION
     Dosage: UNK UNK, QD
     Route: 048
  3. LEVOTHYROXINE [Concomitant]
     Indication: HYPOTHYROIDISM
     Dosage: UNK UNK, QD
     Route: 048
  4. CYTOMEL [Concomitant]
     Indication: HYPOTHYROIDISM
     Dosage: UNK UNK, QD
     Route: 048
  5. VITAMIN D                          /00107901/ [Concomitant]
     Indication: VITAMIN D DEFICIENCY
     Dosage: UNK
     Route: 048
  6. BENTYL [Concomitant]
     Indication: GASTROOESOPHAGEAL REFLUX DISEASE
     Dosage: UNK UNK, QD
     Route: 048
  7. BENTYL [Concomitant]
     Indication: ABDOMINAL PAIN UPPER
  8. FAMOTIDINE [Concomitant]
     Indication: GASTROOESOPHAGEAL REFLUX DISEASE
     Dosage: UNK UNK, QD
     Route: 048
  9. FAMOTIDINE [Concomitant]
     Indication: ABDOMINAL PAIN UPPER

REACTIONS (7)
  - Skin discolouration [Recovering/Resolving]
  - Eye disorder [Recovering/Resolving]
  - Spider vein [Recovering/Resolving]
  - Capillary fragility [Recovering/Resolving]
  - Erythema of eyelid [Recovering/Resolving]
  - Eye irritation [Recovered/Resolved]
  - Drug ineffective [Unknown]
